FAERS Safety Report 6780248-1 (Version None)
Quarter: 2010Q2

REPORT INFORMATION
  Report Type: 
  Country: None (occurrence: None)
  Receive Date: 20100618
  Receipt Date: 20100614
  Transmission Date: 20101027
  Serious: Yes (Hospitalization)
  Sender: FDA-Public Use
  Company Number: DE-ROCHE-709323

PATIENT
  Sex: Female
  Weight: 64 kg

DRUGS (2)
  1. BEVACIZUMAB [Suspect]
     Indication: NON-SMALL CELL LUNG CANCER
     Dosage: FORM: IV. DATE OF LAST DOSE PRIOR TO SAE: 14 MAY 2010.
     Route: 042
     Dates: start: 20100514, end: 20100604
  2. PEMETREXED [Suspect]
     Indication: NON-SMALL CELL LUNG CANCER
     Dosage: FORM: IV. DATE OF LAST DOSE PRIOR TO SAE: 14 MAY 2010. FREQUENCY D1.
     Route: 042
     Dates: start: 20100514, end: 20100604

REACTIONS (1)
  - GENERAL PHYSICAL HEALTH DETERIORATION [None]
